FAERS Safety Report 25047990 (Version 2)
Quarter: 2025Q2

REPORT INFORMATION
  Report Type: Report from Study
  Country: US (occurrence: US)
  Receive Date: 20250306
  Receipt Date: 20250505
  Transmission Date: 20250716
  Serious: Yes (Other)
  Sender: NOVARTIS
  Company Number: US-002147023-NVSC2025US036736

PATIENT
  Sex: Female
  Weight: 90.703 kg

DRUGS (1)
  1. COSENTYX [Suspect]
     Active Substance: SECUKINUMAB
     Indication: Ankylosing spondylitis
     Dosage: 300 MG, QMO (OTHER DOSAGE: 300/2ML)
     Route: 058
     Dates: start: 2023

REACTIONS (3)
  - Pneumonia [Unknown]
  - Sinusitis [Unknown]
  - Norovirus infection [Unknown]
